FAERS Safety Report 6083815-6 (Version None)
Quarter: 2009Q1

REPORT INFORMATION
  Report Type: 
  Country: None (occurrence: None)
  Receive Date: 20090217
  Receipt Date: 20090217
  Transmission Date: 20090719
  Serious: Yes (Congenital Anomaly)
  Sender: FDA-Public Use
  Company Number: None

PATIENT
  Sex: Female

DRUGS (1)
  1. ONDANSETRON [Suspect]
     Indication: PULMONARY HYPERTENSION
     Dosage: 8 MG TID PO
     Route: 048
     Dates: start: 20090206, end: 20090207

REACTIONS (3)
  - NAUSEA [None]
  - PRODUCT QUALITY ISSUE [None]
  - VOMITING [None]
